FAERS Safety Report 8555890-8 (Version None)
Quarter: 2012Q3

REPORT INFORMATION
  Report Type: 
  Country: None (occurrence: None)
  Receive Date: 20120801
  Receipt Date: 20120726
  Transmission Date: 20120928
  Serious: No
  Sender: FDA-Public Use
  Company Number: US-BIOGENIDEC-2012BI028035

PATIENT
  Age: 59 Year
  Sex: Female

DRUGS (3)
  1. TYSABRI [Suspect]
     Indication: MULTIPLE SCLEROSIS
     Route: 042
     Dates: start: 20070713, end: 20071004
  2. TYSABRI [Suspect]
     Route: 042
     Dates: start: 20120507
  3. TYSABRI [Suspect]
     Route: 042
     Dates: start: 20080715, end: 20100524

REACTIONS (4)
  - VISION BLURRED [None]
  - MUSCULOSKELETAL DISORDER [None]
  - DRUG EFFECT DECREASED [None]
  - MUSCULAR WEAKNESS [None]
